FAERS Safety Report 16472342 (Version 1)
Quarter: 2019Q2

REPORT INFORMATION
  Report Type: Spontaneous
  Country: DE (occurrence: DE)
  Receive Date: 20190625
  Receipt Date: 20190625
  Transmission Date: 20190711
  Serious: Yes (Hospitalization, Other)
  Sender: FDA-Public Use
  Company Number: DE-UCBSA-2019025857

PATIENT
  Age: 40 Year
  Sex: Male

DRUGS (4)
  1. VIMPAT [Suspect]
     Active Substance: LACOSAMIDE
     Indication: PRODUCT USED FOR UNKNOWN INDICATION
     Dosage: UNK
  2. LEVETIRACETAM. [Suspect]
     Active Substance: LEVETIRACETAM
     Indication: PRODUCT USED FOR UNKNOWN INDICATION
     Dosage: UNK
  3. LAMOTRIGIN HEXAL [Suspect]
     Active Substance: LAMOTRIGINE
     Indication: PRODUCT USED FOR UNKNOWN INDICATION
     Route: 048
  4. BACLOFEN. [Suspect]
     Active Substance: BACLOFEN
     Indication: INFECTION
     Dosage: UNK
     Route: 048
     Dates: start: 2012

REACTIONS (8)
  - Hepatic steatosis [Unknown]
  - Apathy [Unknown]
  - Epilepsy [Unknown]
  - Renal disorder [Unknown]
  - Staphylococcal infection [Unknown]
  - General physical health deterioration [Unknown]
  - Aphasia [Not Recovered/Not Resolved]
  - Urinary tract infection [Unknown]

NARRATIVE: CASE EVENT DATE: 201903
